FAERS Safety Report 5626974-9 (Version None)
Quarter: 2008Q1

REPORT INFORMATION
  Report Type: 
  Country: None (occurrence: None)
  Receive Date: 20080130
  Receipt Date: 20070919
  Transmission Date: 20080703
  Serious: Yes (Other)
  Sender: FDA-Public Use
  Company Number: HQWYE231120SEP07

PATIENT
  Sex: Female

DRUGS (4)
  1. CORDARONE [Suspect]
     Dosage: ORAL
     Route: 048
     Dates: start: 20040101
  2. ZESTRIL [Concomitant]
  3. SINGULAIR [Concomitant]
  4. TIMOPTIC [Concomitant]

REACTIONS (1)
  - THROMBOCYTOPENIA [None]
